FAERS Safety Report 20789864 (Version 4)
Quarter: 2022Q2

REPORT INFORMATION
  Report Type: Spontaneous
  Country: US (occurrence: US)
  Receive Date: 20220505
  Receipt Date: 20220617
  Transmission Date: 20220721
  Serious: No
  Sender: FDA-Public Use
  Company Number: US-PFIZER INC-202200654772

PATIENT
  Sex: Female

DRUGS (1)
  1. PAXLOVID [Suspect]
     Active Substance: NIRMATRELVIR\RITONAVIR
     Indication: COVID-19 treatment
     Dosage: UNK, 2X/DAY (A DAY FOR TWO TIMES)
     Dates: start: 20220501

REACTIONS (7)
  - Dry mouth [Unknown]
  - Tongue dry [Unknown]
  - Insomnia [Unknown]
  - Lip erythema [Unknown]
  - Oral mucosal erythema [Unknown]
  - Dysphagia [Unknown]
  - Dysgeusia [Unknown]

NARRATIVE: CASE EVENT DATE: 20220501
